FAERS Safety Report 7810313-9 (Version None)
Quarter: 2011Q4

REPORT INFORMATION
  Report Type: 
  Country: None (occurrence: None)
  Receive Date: 20111012
  Receipt Date: 20111003
  Transmission Date: 20120403
  Serious: Yes (Hospitalization, Disabling)
  Sender: FDA-Public Use
  Company Number: BR-ASTRAZENECA-2011SE59289

PATIENT
  Age: 65 Year
  Sex: Male
  Weight: 82 kg

DRUGS (12)
  1. SELOPRESS [Suspect]
     Indication: HYPERTENSION
     Dosage: 100/12.5 MG, DAILY
     Route: 048
     Dates: start: 20040101, end: 20040101
  2. METOPROLOL TARTRATE [Suspect]
     Indication: HYPERTENSION
     Route: 048
     Dates: start: 20040101, end: 20090101
  3. MODURETIC 5-50 [Suspect]
     Indication: HYPERTENSION
     Dosage: DAILY
     Route: 048
     Dates: start: 20040101, end: 20090101
  4. WARFARIN SODIUM [Concomitant]
     Route: 048
  5. SPIROLACTON [Concomitant]
     Route: 048
     Dates: start: 20090101
  6. WARFARIN SODIUM [Concomitant]
     Route: 048
     Dates: start: 20090101
  7. FUROSEMIDE [Concomitant]
     Route: 048
     Dates: start: 20090101
  8. WARFARIN SODIUM [Concomitant]
     Route: 048
  9. AMLODIPINE [Concomitant]
     Route: 048
     Dates: start: 20090101
  10. METOPROLOL SUCCINATE [Suspect]
     Indication: HYPERTENSION
     Route: 048
     Dates: start: 20090101
  11. LOSARTAN POTASSIUM [Concomitant]
     Indication: HYPOTENSION
     Route: 048
     Dates: start: 20090101
  12. ASA PEDIATRIC [Concomitant]
     Dosage: DAILY
     Route: 048
     Dates: start: 20090101

REACTIONS (8)
  - URINARY RETENTION [None]
  - FALL [None]
  - BLOOD PRESSURE INADEQUATELY CONTROLLED [None]
  - PROTHROMBIN TIME PROLONGED [None]
  - ANKLE FRACTURE [None]
  - HYPERTENSION [None]
  - MITRAL VALVE PROLAPSE [None]
  - DRUG INEFFECTIVE [None]
